FAERS Safety Report 9543848 (Version 1)
Quarter: 2013Q3

REPORT INFORMATION
  Report Type: Spontaneous
  Country: US (occurrence: US)
  Receive Date: 20130923
  Receipt Date: 20130923
  Transmission Date: 20140515
  Serious: Yes (Other)
  Sender: FDA-Public Use
  Company Number: US-GLAXOSMITHKLINE-A1042363A

PATIENT
  Sex: Female

DRUGS (1)
  1. LAMICTAL XR [Suspect]
     Indication: PRODUCT USED FOR UNKNOWN INDICATION
     Dosage: 50MG UNKNOWN
     Route: 065
     Dates: start: 20110714

REACTIONS (1)
  - Neoplasm malignant [Unknown]
